FAERS Safety Report 17517293 (Version 1)
Quarter: 2020Q1

REPORT INFORMATION
  Report Type: Spontaneous
  Country: GR (occurrence: GR)
  Receive Date: 20200309
  Receipt Date: 20200309
  Transmission Date: 20200409
  Serious: Yes (Life-Threatening, Other)
  Sender: FDA-Public Use
  Company Number: GR-AMGEN-GRCSP2020036706

PATIENT

DRUGS (4)
  1. IRINOTECAN [Concomitant]
     Active Substance: IRINOTECAN
     Indication: COLORECTAL CANCER METASTATIC
     Dosage: 130 MILLIGRAM/SQ. METER, AS 90MIN IV INFUSION ON DAY 1
     Route: 042
  2. LEUCOVORIN [FOLINIC ACID] [Concomitant]
     Active Substance: LEUCOVORIN
     Indication: COLORECTAL CANCER METASTATIC
     Dosage: 400 MILLIGRAM/SQ. METER, AS 2H IV INFUSION ON DAY 1
     Route: 042
  3. 5-FU [FLUOROURACIL] [Concomitant]
     Active Substance: FLUOROURACIL
     Indication: COLORECTAL CANCER METASTATIC
     Dosage: 400 MILLIGRAM/SQ. METER, AS BOLUS IV INFUSION ON DAY 1 AND 1.200 MG/M2 AS CONTINUOUS IV INFUSION FOR
     Route: 040
  4. PANITUMUMAB [Suspect]
     Active Substance: PANITUMUMAB
     Indication: COLORECTAL CANCER METASTATIC
     Dosage: 6 MILLIGRAM/KILOGRAM, AS 60MIN IV INFUSION
     Route: 042

REACTIONS (7)
  - Skin toxicity [Unknown]
  - Intestinal perforation [Unknown]
  - Fatigue [Unknown]
  - Mucosal inflammation [Unknown]
  - Paronychia [Unknown]
  - Diarrhoea [Unknown]
  - Neutropenia [Unknown]
